FAERS Safety Report 7747589-2 (Version None)
Quarter: 2011Q3

REPORT INFORMATION
  Report Type: 
  Country: None (occurrence: None)
  Receive Date: 20110913
  Receipt Date: 20110831
  Transmission Date: 20111222
  Serious: Yes (Other)
  Sender: FDA-Public Use
  Company Number: CH-ELI_LILLY_AND_COMPANY-CH201109000296

PATIENT
  Age: 41 Year
  Sex: Female

DRUGS (4)
  1. CYMBALTA [Suspect]
     Indication: DEPRESSION
     Dosage: 30 MG, QD
     Route: 048
     Dates: start: 20110201, end: 20110207
  2. TOPAMAX [Concomitant]
     Indication: HEADACHE
     Dosage: 100 MG, QD
     Route: 048
  3. INDERAL [Concomitant]
     Indication: HEADACHE
     Dosage: 80 MG, QD
     Route: 048
  4. ASPIRIN [Concomitant]
     Indication: ATRIAL SEPTAL DEFECT
     Dosage: 300 MG, QD
     Route: 048

REACTIONS (4)
  - RASH PUSTULAR [None]
  - NAUSEA [None]
  - CONSTIPATION [None]
  - FATIGUE [None]
